FAERS Safety Report 8520806-7 (Version None)
Quarter: 2012Q3

REPORT INFORMATION
  Report Type: 
  Country: None (occurrence: None)
  Receive Date: 20120719
  Receipt Date: 20120710
  Transmission Date: 20120928
  Serious: Yes (Other)
  Sender: FDA-Public Use
  Company Number: BR-JNJFOC-20120705689

PATIENT
  Sex: Male

DRUGS (2)
  1. REMICADE [Suspect]
     Indication: ANKYLOSING SPONDYLITIS
     Route: 042
     Dates: start: 20110101, end: 20111201
  2. REMICADE [Suspect]
     Route: 042
     Dates: start: 20120104

REACTIONS (3)
  - TACHYCARDIA [None]
  - RESPIRATORY FAILURE [None]
  - HYPERSENSITIVITY [None]
